FAERS Safety Report 4296549-5 (Version None)
Quarter: 2004Q1

REPORT INFORMATION
  Report Type: 
  Country: None (occurrence: None)
  Receive Date: 20040126
  Receipt Date: 20030825
  Transmission Date: 20041129
  Serious: No
  Sender: FDA-Public Use
  Company Number: USA030845328

PATIENT
  Age: 10 Year
  Sex: Male
  Weight: 26 kg

DRUGS (3)
  1. STRATTERA [Suspect]
     Indication: ATTENTION DEFICIT/HYPERACTIVITY DISORDER
     Dosage: 40 MG/DAY
     Dates: start: 20030601
  2. ALLEGRA [Concomitant]
  3. ALAVERT (LORATADINE) [Concomitant]

REACTIONS (4)
  - FATIGUE [None]
  - MIGRAINE [None]
  - RASH [None]
  - TREMOR [None]
